FAERS Safety Report 5043717-0 (Version None)
Quarter: 2006Q3

REPORT INFORMATION
  Report Type: 
  Country: None (occurrence: None)
  Receive Date: 20060706
  Receipt Date: 20060627
  Transmission Date: 20061208
  Serious: Yes (Disabling)
  Sender: FDA-Public Use
  Company Number: DE-JNJFOC-20060606117

PATIENT
  Age: 82 Year
  Sex: Female

DRUGS (2)
  1. DURAGESIC-100 [Suspect]
     Indication: OFF LABEL USE
     Route: 062
  2. DURAGESIC-100 [Suspect]
     Indication: PROCEDURAL PAIN
     Dosage: EXPIRY DATE: MAY-2005.
     Route: 062

REACTIONS (6)
  - ABASIA [None]
  - DYSPEPSIA [None]
  - FEELING ABNORMAL [None]
  - INTENTIONAL DRUG MISUSE [None]
  - NAUSEA [None]
  - VISUAL ACUITY REDUCED [None]
